FAERS Safety Report 9767660 (Version 1)
Quarter: 2013Q3

REPORT INFORMATION
  Report Type: Spontaneous
  Country: GB (occurrence: None)
  Receive Date: 20130828
  Receipt Date: 20130828
  Transmission Date: 20140515
  Serious: Yes (Death)
  Sender: FDA-Public Use
  Company Number: SULF20130010

PATIENT
  Age: 70 Year
  Sex: Female

DRUGS (1)
  1. SULFASALAZINE [Suspect]
     Indication: PALINDROMIC RHEUMATISM
     Route: 048

REACTIONS (12)
  - Drug reaction with eosinophilia and systemic symptoms [None]
  - Hepatitis acute [None]
  - Diabetes mellitus [None]
  - Diarrhoea [None]
  - Vomiting [None]
  - Chest pain [None]
  - Electrocardiogram ST segment elevation [None]
  - Troponin increased [None]
  - Shock [None]
  - Cardiac arrest [None]
  - Left ventricular hypertrophy [None]
  - Eosinophilic myocarditis [None]
